FAERS Safety Report 20921756 (Version 7)
Quarter: 2022Q3

REPORT INFORMATION
  Report Type: Report from Study
  Country: ES (occurrence: ES)
  Receive Date: 20220606
  Receipt Date: 20220712
  Transmission Date: 20221026
  Serious: Yes (Hospitalization)
  Sender: FDA-Public Use
  Company Number: ES-ABBVIE-22K-144-4421983-00

PATIENT
  Age: 73 Year
  Sex: Female

DRUGS (4)
  1. CARBIDOPA\LEVODOPA [Interacting]
     Active Substance: CARBIDOPA\LEVODOPA
     Indication: Parkinson^s disease
     Route: 050
     Dates: start: 20190911, end: 202206
  2. CARBIDOPA\LEVODOPA [Interacting]
     Active Substance: CARBIDOPA\LEVODOPA
     Dosage: INCREASE OF THE CONTINUOUS RATE
     Route: 050
     Dates: start: 202206, end: 20220613
  3. CARBIDOPA\LEVODOPA [Interacting]
     Active Substance: CARBIDOPA\LEVODOPA
     Dosage: DECREASE THE CONTINUOUS RATE BY 0.1 ML/H
     Route: 050
     Dates: start: 20220613, end: 202206
  4. CARBIDOPA\LEVODOPA [Interacting]
     Active Substance: CARBIDOPA\LEVODOPA
     Dosage: DECREASED THE CONTINUOUS RATE BY 0.1 ML/H
     Route: 050
     Dates: start: 202206

REACTIONS (6)
  - Urinary tract infection [Recovered/Resolved]
  - Inhibitory drug interaction [Unknown]
  - Movement disorder [Recovered/Resolved]
  - Freezing phenomenon [Recovered/Resolved]
  - Therapeutic product effect delayed [Unknown]
  - Freezing phenomenon [Recovered/Resolved]

NARRATIVE: CASE EVENT DATE: 20220518
